FAERS Safety Report 7473438-6 (Version None)
Quarter: 2011Q2

REPORT INFORMATION
  Report Type: 
  Country: None (occurrence: None)
  Receive Date: 20110511
  Receipt Date: 20110503
  Transmission Date: 20111010
  Serious: Yes (Hospitalization)
  Sender: FDA-Public Use
  Company Number: FR-PFIZER INC-2011095554

PATIENT
  Age: 42 Year
  Sex: Male

DRUGS (2)
  1. ASPEGIC 325 [Suspect]
     Dosage: 100 MG, 1X/DAY
     Route: 048
  2. SIROLIMUS [Suspect]
     Indication: IMMUNOSUPPRESSANT DRUG THERAPY
     Dosage: 4 MG/L, UNK
     Route: 048

REACTIONS (1)
  - DUODENITIS [None]
